FAERS Safety Report 19074214 (Version 1)
Quarter: 2021Q1

REPORT INFORMATION
  Report Type: Spontaneous
  Country: CA (occurrence: CA)
  Receive Date: 20210330
  Receipt Date: 20210330
  Transmission Date: 20210420
  Serious: Yes (Life-Threatening, Hospitalization, Other)
  Sender: FDA-Public Use
  Company Number: CA-PFIZER INC-2021323686

PATIENT
  Age: 15 Year
  Sex: Male
  Weight: 78 kg

DRUGS (15)
  1. AMITRIPTYLINE [Concomitant]
     Active Substance: AMITRIPTYLINE
  2. GABAPENTIN. [Concomitant]
     Active Substance: GABAPENTIN
  3. KEPPRA [Concomitant]
     Active Substance: LEVETIRACETAM
  4. PANTOPRAZOLE [Concomitant]
     Active Substance: PANTOPRAZOLE
  5. VITAMIN D [ERGOCALCIFEROL] [Concomitant]
     Active Substance: ERGOCALCIFEROL
  6. VORICONAZOLE. [Concomitant]
     Active Substance: VORICONAZOLE
  7. METHOTREXATE SODIUM. [Suspect]
     Active Substance: METHOTREXATE SODIUM
     Dosage: 30 MG, WEEKLY
     Route: 048
  8. METHADONE [Concomitant]
     Active Substance: METHADONE HYDROCHLORIDE
  9. SENNA [Concomitant]
     Active Substance: SENNA LEAF\SENNOSIDES\SENNOSIDES A AND B
  10. ONDANSETRON [Concomitant]
     Active Substance: ONDANSETRON
  11. POLYETHYLENE GLYCOL [MACROGOL] [Concomitant]
     Active Substance: POLYETHYLENE GLYCOLS
  12. IMATINIB. [Concomitant]
     Active Substance: IMATINIB MESYLATE
  13. MERCAPTOPURINE. [Suspect]
     Active Substance: MERCAPTOPURINE
     Dosage: 150 MG, 1X/DAY
     Route: 048
  14. PREDNISONE. [Concomitant]
     Active Substance: PREDNISONE
  15. VINCRISTINE SULFATE. [Concomitant]
     Active Substance: VINCRISTINE SULFATE

REACTIONS (1)
  - Febrile neutropenia [Recovering/Resolving]
